FAERS Safety Report 17714640 (Version 2)
Quarter: 2020Q2

REPORT INFORMATION
  Report Type: Report from Study
  Country: PH (occurrence: PH)
  Receive Date: 20200427
  Receipt Date: 20200429
  Transmission Date: 20200714
  Serious: Yes (Other)
  Sender: FDA-Public Use
  Company Number: PH-SEATTLE GENETICS-2019SGN04439

PATIENT
  Sex: Male

DRUGS (1)
  1. BRENTUXIMAB VEDOTIN [Suspect]
     Active Substance: BRENTUXIMAB VEDOTIN
     Indication: CUTANEOUS T-CELL LYMPHOMA
     Dosage: 100 MILLIGRAM
     Route: 042
     Dates: start: 20190429

REACTIONS (5)
  - Mobility decreased [Unknown]
  - Drug ineffective [Unknown]
  - Pleural effusion [Unknown]
  - Cellulitis [Unknown]
  - Pneumonia [Unknown]
